FAERS Safety Report 18535348 (Version 1)
Quarter: 2020Q4

REPORT INFORMATION
  Report Type: Spontaneous
  Country: US (occurrence: US)
  Receive Date: 20201123
  Receipt Date: 20201123
  Transmission Date: 20210114
  Serious: Yes (Hospitalization)
  Sender: FDA-Public Use
  Company Number: US-ELI_LILLY_AND_COMPANY-US202011004904

PATIENT
  Sex: Female

DRUGS (5)
  1. TRESIBA [Concomitant]
     Active Substance: INSULIN DEGLUDEC
     Indication: PRODUCT USED FOR UNKNOWN INDICATION
  2. HUMULIN R [Suspect]
     Active Substance: INSULIN HUMAN
     Dosage: 6 U, PRN (5-6 UNITS 4-6 TIMES IN A DAY PER SLIDING SCALE)
     Route: 058
  3. NOVOLOG [Suspect]
     Active Substance: INSULIN ASPART
     Indication: TYPE 2 DIABETES MELLITUS
     Dosage: UNK UNK, UNKNOWN
     Route: 058
  4. HUMALOG [Suspect]
     Active Substance: INSULIN LISPRO
     Indication: TYPE 2 DIABETES MELLITUS
     Dosage: UNK UNK, UNKNOWN
     Route: 058
  5. HUMULIN R [Suspect]
     Active Substance: INSULIN HUMAN
     Indication: TYPE 2 DIABETES MELLITUS
     Dosage: 6 U, PRN (5-6 UNITS 4-6 TIMES IN A DAY PER SLIDING SCALE)
     Route: 058
     Dates: start: 2010

REACTIONS (7)
  - Blood glucose increased [Recovering/Resolving]
  - Product storage error [Unknown]
  - Pruritus [Unknown]
  - Diabetic ketoacidosis [Recovered/Resolved]
  - Joint swelling [Unknown]
  - Drug hypersensitivity [Unknown]
  - Drug ineffective [Unknown]

NARRATIVE: CASE EVENT DATE: 2019
